FAERS Safety Report 8207363-X (Version None)
Quarter: 2012Q1

REPORT INFORMATION
  Report Type: 
  Country: None (occurrence: None)
  Receive Date: 20120314
  Receipt Date: 20120204
  Transmission Date: 20120608
  Serious: No
  Sender: FDA-Public Use
  Company Number: US-GLAXOSMITHKLINE-A0964690A

PATIENT
  Age: 64 Year
  Sex: Female

DRUGS (4)
  1. PROAIR HFA [Concomitant]
  2. ADVAIR DISKUS 100/50 [Concomitant]
  3. NICODERM CQ [Suspect]
     Indication: SMOKING CESSATION THERAPY
  4. NICORETTE [Suspect]
     Indication: SMOKING CESSATION THERAPY
     Dates: start: 20120130

REACTIONS (6)
  - DRUG ADMINISTRATION ERROR [None]
  - APPLICATION SITE PRURITUS [None]
  - APPLICATION SITE IRRITATION [None]
  - TREMOR [None]
  - FEAR [None]
  - NERVOUSNESS [None]
